FAERS Safety Report 7508174-0 (Version None)
Quarter: 2011Q2

REPORT INFORMATION
  Report Type: 
  Country: None (occurrence: None)
  Receive Date: 20110527
  Receipt Date: 20110325
  Transmission Date: 20111010
  Serious: No
  Sender: FDA-Public Use
  Company Number: US-MYLANLABS-2011S1006787

PATIENT
  Age: 43 Year
  Sex: Female

DRUGS (2)
  1. BUPROPION HYDROCHLORIDE [Suspect]
     Indication: DEPRESSION
     Route: 048
     Dates: start: 20110308, end: 20110311
  2. VENLAFAXINE HYDROCHLORIDE [Suspect]
     Indication: DEPRESSION
     Route: 048
     Dates: start: 20110312

REACTIONS (5)
  - RHINORRHOEA [None]
  - HYPERSENSITIVITY [None]
  - NASAL CONGESTION [None]
  - CHOKING SENSATION [None]
  - RASH [None]
